FAERS Safety Report 12705858 (Version 2)
Quarter: 2016Q3

REPORT INFORMATION
  Report Type: Spontaneous
  Country: NZ (occurrence: NZ)
  Receive Date: 20160901
  Receipt Date: 20160909
  Transmission Date: 20161109
  Serious: Yes (Disabling, Other)
  Sender: FDA-Public Use
  Company Number: NZ-ABBVIE-16K-118-1714387-00

PATIENT
  Age: 76 Year
  Sex: Male
  Weight: 91.6 kg

DRUGS (2)
  1. HUMIRA [Suspect]
     Active Substance: ADALIMUMAB
     Indication: PSORIASIS
     Route: 058
     Dates: start: 20110101, end: 20160601
  2. WARFARIN [Concomitant]
     Active Substance: WARFARIN
     Indication: ATRIAL FIBRILLATION

REACTIONS (13)
  - Gout [Unknown]
  - Haematocrit increased [Unknown]
  - Weight decreased [Unknown]
  - Lower respiratory tract infection [Recovering/Resolving]
  - Blood creatinine increased [Unknown]
  - Fatigue [Unknown]
  - Haemoglobin increased [Unknown]
  - Gamma-glutamyltransferase increased [Unknown]
  - Blood immunoglobulin E increased [Unknown]
  - Dyspnoea [Recovering/Resolving]
  - Organising pneumonia [Unknown]
  - Interstitial lung disease [Recovered/Resolved with Sequelae]
  - Dyspnoea [Unknown]

NARRATIVE: CASE EVENT DATE: 20150401
